FAERS Safety Report 7190441-4 (Version None)
Quarter: 2010Q4

REPORT INFORMATION
  Report Type: 
  Country: None (occurrence: None)
  Receive Date: 20101221
  Receipt Date: 20101221
  Transmission Date: 20110411
  Serious: Yes (Hospitalization)
  Sender: FDA-Public Use
  Company Number: None

PATIENT
  Sex: Female
  Weight: 88.4 kg

DRUGS (4)
  1. CYCLOPHOSPHAMIDE [Suspect]
     Dosage: 7050 MG
  2. DOXORUBICIN HYDROCHLORIDE [Suspect]
     Dosage: 705 MG
  3. TAXOL [Suspect]
     Dosage: 1705 MG
  4. NEULASTA [Suspect]
     Dosage: 36 MG

REACTIONS (1)
  - ACUTE LYMPHOCYTIC LEUKAEMIA [None]
